FAERS Safety Report 21248718 (Version 3)
Quarter: 2023Q1

REPORT INFORMATION
  Report Type: Spontaneous
  Country: US (occurrence: US)
  Receive Date: 20220824
  Receipt Date: 20230207
  Transmission Date: 20230417
  Serious: No
  Sender: FDA-Public Use
  Company Number: US-BRISTOL-MYERS SQUIBB COMPANY-2022-094822

PATIENT
  Age: 65 Year
  Sex: Female
  Weight: 56.7 kg

DRUGS (2)
  1. REVLIMID [Suspect]
     Active Substance: LENALIDOMIDE
     Indication: Plasma cell myeloma
     Dosage: 14D ON 7D OFF?3W, 1W OFF
     Route: 048
  2. REVLIMID [Suspect]
     Active Substance: LENALIDOMIDE
     Dosage: 14D OF 21D CYCLE
     Route: 048

REACTIONS (8)
  - Hepatic enzyme increased [Unknown]
  - White blood cell count decreased [Unknown]
  - Intentional product use issue [Unknown]
  - Fatigue [Unknown]
  - Dyspepsia [Unknown]
  - Feeling abnormal [Unknown]
  - Somnolence [Unknown]
  - Throat tightness [Unknown]
